FAERS Safety Report 16055651 (Version 1)
Quarter: 2019Q1

REPORT INFORMATION
  Report Type: Spontaneous
  Country: US (occurrence: US)
  Receive Date: 20190208
  Receipt Date: 20190208
  Transmission Date: 20190418
  Serious: No
  Sender: FDA-Public Use
  Company Number: None

PATIENT
  Age: 65 Year
  Sex: Female
  Weight: 54.43 kg

DRUGS (3)
  1. TALTZ [Suspect]
     Active Substance: IXEKIZUMAB
     Indication: OSTEOPOROSIS
     Dosage: ?          OTHER DOSE:80MG (1 PEN) ;?
     Route: 058
     Dates: start: 201812
  2. TALTZ [Suspect]
     Active Substance: IXEKIZUMAB
     Indication: PSORIATIC ARTHROPATHY
     Dosage: ?          OTHER DOSE:80MG (1 PEN) ;?
     Route: 058
     Dates: start: 201812
  3. TALTZ [Suspect]
     Active Substance: IXEKIZUMAB
     Indication: OSTEOPOROSIS

REACTIONS (2)
  - Pneumonia [None]
  - Bronchitis [None]
